FAERS Safety Report 4615463-6 (Version None)
Quarter: 2005Q1

REPORT INFORMATION
  Report Type: 
  Country: None (occurrence: None)
  Receive Date: 20050317
  Receipt Date: 20050304
  Transmission Date: 20050727
  Serious: Yes (Hospitalization, Disabling)
  Sender: FDA-Public Use
  Company Number: 2005041341

PATIENT
  Age: 56 Year
  Sex: Female

DRUGS (6)
  1. ZOLOFT [Suspect]
     Indication: DEPRESSION
  2. CITRIC ACID (CITRIC ACID) [Concomitant]
  3. HYZAAR [Concomitant]
  4. LOSARTAN (LOSARTAN) [Concomitant]
  5. HYDROCHLOROTHIAZIDE [Concomitant]
  6. CALCIUM CARBONATE (CALCIUM CARBONATE) [Concomitant]

REACTIONS (2)
  - CATARACT OPERATION [None]
  - VISUAL ACUITY REDUCED [None]
